FAERS Safety Report 8880163 (Version 2)
Quarter: 2013Q2

REPORT INFORMATION
  Report Type: Report from Study
  Country: JP (occurrence: JP)
  Receive Date: 20121101
  Receipt Date: 20130401
  Transmission Date: 20140414
  Serious: Yes (Hospitalization)
  Sender: FDA-Public Use
  Company Number: JP-AMGEN-JPNCT2012069542

PATIENT
  Age: 59 Year
  Sex: Female
  Weight: 47 kg

DRUGS (20)
  1. DARBEPOETIN ALFA [Suspect]
     Indication: NEPHROGENIC ANAEMIA
     Dosage: 20 MUG, QD
     Route: 058
     Dates: start: 20110601
  2. DARBEPOETIN ALFA [Suspect]
     Dosage: 60 MUG, QD
     Route: 058
     Dates: start: 20110706, end: 20110706
  3. DARBEPOETIN ALFA [Suspect]
     Dosage: 120 MUG, QD
     Route: 058
     Dates: start: 20110810, end: 20110810
  4. DARBEPOETIN ALFA [Suspect]
     Dosage: 120 MUG, QD
     Route: 058
     Dates: start: 20110921, end: 20110921
  5. DARBEPOETIN ALFA [Suspect]
     Dosage: 120 MUG, QD
     Route: 058
     Dates: start: 20111102, end: 20111102
  6. DARBEPOETIN ALFA [Suspect]
     Dosage: 120 MUG, Q3WK
     Route: 058
     Dates: start: 20111122, end: 20120125
  7. DARBEPOETIN ALFA [Suspect]
     Dosage: 60 MUG, QD
     Route: 058
     Dates: start: 20120209, end: 20120209
  8. DARBEPOETIN ALFA [Suspect]
     Dosage: 120 MUG, QD
     Route: 058
     Dates: start: 20120215, end: 20120215
  9. DARBEPOETIN ALFA [Suspect]
     Dosage: 120 MUG, Q4WK
     Route: 058
     Dates: start: 20120404
  10. DARBEPOETIN ALFA [Suspect]
     Dosage: UNK
  11. MEVALOTIN [Concomitant]
     Dosage: UNK
     Route: 048
  12. ZYLORIC [Concomitant]
     Dosage: UNK
     Route: 048
  13. THYRADIN [Concomitant]
     Dosage: UNK
     Route: 048
  14. DIOVAN [Concomitant]
     Dosage: UNK
     Route: 048
  15. PARIET [Concomitant]
     Indication: PROPHYLAXIS
     Dosage: UNK
     Route: 048
  16. TANKARU [Concomitant]
     Dosage: UNK
     Route: 048
  17. RINDERON [Concomitant]
     Indication: GLOMERULONEPHRITIS CHRONIC
     Dosage: UNK
     Route: 048
  18. MUCOSTA [Concomitant]
     Indication: PROPHYLAXIS
     Dosage: UNK
     Route: 048
  19. ONEALFA [Concomitant]
     Indication: PROPHYLAXIS
     Dosage: UNK
     Route: 048
  20. MERISLON [Concomitant]
     Dosage: UNK
     Route: 048

REACTIONS (1)
  - Colon cancer [Recovered/Resolved]
